FAERS Safety Report 4559239-7 (Version None)
Quarter: 2005Q1

REPORT INFORMATION
  Report Type: 
  Country: None (occurrence: None)
  Receive Date: 20050121
  Receipt Date: 20050121
  Transmission Date: 20050727
  Serious: Yes (Hospitalization)
  Sender: FDA-Public Use
  Company Number: None

PATIENT
  Age: 56 Year
  Sex: Male
  Weight: 74.2 kg

DRUGS (4)
  1. AVASTIN [Suspect]
     Indication: COLON CANCER METASTATIC
     Route: 042
     Dates: start: 20041011, end: 20041011
  2. OXALIPLATIN [Suspect]
     Indication: COLON CANCER METASTATIC
     Dosage: INTRAVENOU
     Route: 042
     Dates: start: 20041011, end: 20041011
  3. FLUOROURACIL [Concomitant]
  4. LEUCOVORIN [Concomitant]

REACTIONS (11)
  - ANOREXIA [None]
  - ASTHENIA [None]
  - DYSPNOEA [None]
  - ELECTROLYTE IMBALANCE [None]
  - HAEMODIALYSIS [None]
  - HYPOKALAEMIA [None]
  - HYPOXIA [None]
  - MENTAL STATUS CHANGES [None]
  - METABOLIC ACIDOSIS [None]
  - PLEURAL EFFUSION [None]
  - RENAL FAILURE ACUTE [None]
